FAERS Safety Report 7384168-3 (Version None)
Quarter: 2011Q1

REPORT INFORMATION
  Report Type: 
  Country: None (occurrence: None)
  Receive Date: 20110330
  Receipt Date: 20110323
  Transmission Date: 20110831
  Serious: Yes (Other)
  Sender: FDA-Public Use
  Company Number: B0708304A

PATIENT
  Age: 66 Year
  Sex: Male
  Weight: 59 kg

DRUGS (10)
  1. ALKERAN [Suspect]
     Indication: STEM CELL TRANSPLANT
     Dosage: 100MGM2 PER DAY
     Route: 042
     Dates: start: 20061010, end: 20061011
  2. MYONAL [Concomitant]
     Dosage: 150MG PER DAY
     Route: 048
     Dates: start: 20060913
  3. ZOVIRAX [Concomitant]
     Dosage: 2.5G PER DAY
     Route: 048
     Dates: start: 20061009
  4. SEROTONE [Concomitant]
     Dosage: 10MG PER DAY
     Route: 042
     Dates: start: 20061010, end: 20061011
  5. FUNGUARD [Concomitant]
     Dosage: 50MG PER DAY
     Route: 042
     Dates: start: 20060917, end: 20061010
  6. AMOBAN [Concomitant]
     Dosage: 7.5MG PER DAY
     Route: 048
     Dates: start: 20060913
  7. MAGMITT [Concomitant]
     Dosage: 1980MG PER DAY
     Route: 048
     Dates: start: 20060913
  8. CRAVIT [Concomitant]
     Dosage: 400MG PER DAY
     Route: 048
     Dates: start: 20061011, end: 20061013
  9. PROTECADIN [Concomitant]
     Dosage: 20MG PER DAY
     Route: 048
     Dates: start: 20060913
  10. SEROQUEL [Concomitant]
     Dosage: 100MG PER DAY
     Route: 048
     Dates: start: 20060913

REACTIONS (1)
  - MUSCLE SPASMS [None]
